FAERS Safety Report 5831393-6 (Version None)
Quarter: 2008Q3

REPORT INFORMATION
  Report Type: 
  Country: None (occurrence: None)
  Receive Date: 20080801
  Receipt Date: 20080721
  Transmission Date: 20090109
  Serious: Yes (Other)
  Sender: FDA-Public Use
  Company Number: US-PFIZER INC-2008036921

PATIENT
  Sex: Female
  Weight: 65 kg

DRUGS (5)
  1. LYRICA [Suspect]
     Indication: ARTHRALGIA
     Dates: start: 20080218, end: 20080201
  2. LYRICA [Suspect]
     Indication: MONOPLEGIA
  3. LYRICA [Suspect]
     Indication: LUMBAR RADICULOPATHY
  4. PERCOCET [Suspect]
     Indication: PAIN
     Dosage: FREQ:FOUR TIMES A DAY WHEN NEEDED
  5. LEVOTHYROXINE SODIUM [Concomitant]
     Indication: THYROID DISORDER

REACTIONS (7)
  - BACK PAIN [None]
  - DIZZINESS [None]
  - DRUG INEFFECTIVE [None]
  - DYSPNOEA [None]
  - HYPERVENTILATION [None]
  - LOSS OF CONSCIOUSNESS [None]
  - VISION BLURRED [None]
